FAERS Safety Report 8968970 (Version 1)
Quarter: 2012Q4

REPORT INFORMATION
  Report Type: Spontaneous
  Country: US (occurrence: None)
  Receive Date: 20121214
  Receipt Date: 20121214
  Transmission Date: 20130627
  Serious: Yes (Other)
  Sender: FDA-Public Use
  Company Number: None

PATIENT
  Sex: Female
  Weight: 113.4 kg

DRUGS (1)
  1. LAMOTRIGINE 200 MG TABLETS [Suspect]
     Indication: MAJOR DEPRESSION
     Dosage: 200 mg Q HS po
     Route: 048

REACTIONS (5)
  - Product substitution issue [None]
  - Depression [None]
  - Impaired work ability [None]
  - Decreased activity [None]
  - Hypophagia [None]
